FAERS Safety Report 17645913 (Version 1)
Quarter: 2020Q2

REPORT INFORMATION
  Report Type: Spontaneous
  Country: AR (occurrence: AR)
  Receive Date: 20200408
  Receipt Date: 20200408
  Transmission Date: 20200713
  Serious: No
  Sender: FDA-Public Use
  Company Number: AR-EMD SERONO-9108345

PATIENT
  Age: 38 Year
  Sex: Female

DRUGS (2)
  1. MAVENCLAD [Suspect]
     Active Substance: CLADRIBINE
     Dosage: YEAR ONE SECOND WEEK THERAPY.
     Route: 048
     Dates: start: 20190726, end: 20190730
  2. MAVENCLAD [Suspect]
     Active Substance: CLADRIBINE
     Indication: MULTIPLE SCLEROSIS
     Dosage: YEAR ONE FIRST WEEK THERAPY.
     Route: 048
     Dates: start: 20190628, end: 20190702

REACTIONS (5)
  - Balance disorder [Recovering/Resolving]
  - Asthenia [Recovering/Resolving]
  - Eye symptom [Not Recovered/Not Resolved]
  - Hemianaesthesia [Not Recovered/Not Resolved]
  - Multiple sclerosis relapse [Recovered/Resolved]

NARRATIVE: CASE EVENT DATE: 201907
